FAERS Safety Report 6111704-7 (Version None)
Quarter: 2009Q1

REPORT INFORMATION
  Report Type: 
  Country: None (occurrence: None)
  Receive Date: 20090310
  Receipt Date: 20090310
  Transmission Date: 20090719
  Serious: Yes (Hospitalization)
  Sender: FDA-Public Use
  Company Number: None

PATIENT
  Age: 30 Year
  Sex: Female
  Weight: 98.4 kg

DRUGS (1)
  1. HYDROCODONE BITARTRATE [Suspect]
     Indication: PAIN
     Dosage: 1-2 TABLETS EVERY 4-6 HOURS PO
     Route: 048

REACTIONS (5)
  - ANAPHYLACTIC REACTION [None]
  - APNOEA [None]
  - ARNOLD-CHIARI MALFORMATION [None]
  - FAECAL INCONTINENCE [None]
  - INCREASED BRONCHIAL SECRETION [None]
